FAERS Safety Report 8520091-6 (Version None)
Quarter: 2012Q3

REPORT INFORMATION
  Report Type: 
  Country: None (occurrence: None)
  Receive Date: 20120719
  Receipt Date: 20120703
  Transmission Date: 20120928
  Serious: Yes (Death)
  Sender: FDA-Public Use
  Company Number: ES-009507513-1207ESP002326

PATIENT

DRUGS (1)
  1. SYCREST [Suspect]
     Indication: BIPOLAR I DISORDER
     Route: 060

REACTIONS (1)
  - COMPLETED SUICIDE [None]
